FAERS Safety Report 10327950 (Version 1)
Quarter: 2014Q3

REPORT INFORMATION
  Report Type: Spontaneous
  Country: US (occurrence: US)
  Receive Date: 20140721
  Receipt Date: 20140721
  Transmission Date: 20150326
  Serious: No
  Sender: FDA-Public Use
  Company Number: US-PFIZER INC-2014202221

PATIENT
  Age: 63 Year
  Sex: Female
  Weight: 63.49 kg

DRUGS (9)
  1. OXYCONTIN [Concomitant]
     Active Substance: OXYCODONE HYDROCHLORIDE
     Dosage: UNK
  2. PREDNISONE. [Concomitant]
     Active Substance: PREDNISONE
     Dosage: UNK
  3. XELJANZ [Suspect]
     Active Substance: TOFACITINIB CITRATE
     Indication: RHEUMATOID ARTHRITIS
     Dosage: 5 MG, 2X/DAY
     Route: 048
     Dates: start: 20130828
  4. FOLIC ACID. [Concomitant]
     Active Substance: FOLIC ACID
     Dosage: UNK
  5. METHOTREXATE [Suspect]
     Active Substance: METHOTREXATE
     Dosage: UNK
     Dates: end: 2014
  6. SOMA [Concomitant]
     Active Substance: CARISOPRODOL
     Dosage: UNK
  7. COUMADIN [Concomitant]
     Active Substance: WARFARIN SODIUM
     Dosage: UNK
  8. GABAPENTIN. [Concomitant]
     Active Substance: GABAPENTIN
     Dosage: UNK
  9. DIAZEPAM. [Concomitant]
     Active Substance: DIAZEPAM
     Dosage: UNK

REACTIONS (3)
  - Rash [Not Recovered/Not Resolved]
  - Chromaturia [Not Recovered/Not Resolved]
  - Rhinalgia [Not Recovered/Not Resolved]

NARRATIVE: CASE EVENT DATE: 2014
